FAERS Safety Report 6618628-7 (Version None)
Quarter: 2010Q1

REPORT INFORMATION
  Report Type: 
  Country: None (occurrence: None)
  Receive Date: 20100302
  Receipt Date: 20100215
  Transmission Date: 20100710
  Serious: Yes (Hospitalization)
  Sender: FDA-Public Use
  Company Number: APP201000091

PATIENT
  Age: 52 Year
  Sex: Female
  Weight: 49 kg

DRUGS (5)
  1. MIDAZOLAM HYDROCHLORIDE [Suspect]
     Indication: SEDATION
  2. DIPRIVAN [Suspect]
     Indication: SEDATION
  3. FENTANYL-100 [Suspect]
     Indication: SEDATION
  4. SUCCINYLCHOLINE CHLORIDE [Suspect]
     Indication: NEUROMUSCULAR BLOCKADE
  5. ISOFLURANE [Suspect]
     Indication: SEDATION

REACTIONS (4)
  - DELAYED RECOVERY FROM ANAESTHESIA [None]
  - DISSOCIATIVE DISORDER [None]
  - MYDRIASIS [None]
  - NO THERAPEUTIC RESPONSE [None]
